FAERS Safety Report 6738394-4 (Version None)
Quarter: 2010Q2

REPORT INFORMATION
  Report Type: 
  Country: None (occurrence: None)
  Receive Date: 20100520
  Receipt Date: 20100506
  Transmission Date: 20101027
  Serious: Yes (Hospitalization, Other)
  Sender: FDA-Public Use
  Company Number: 2010AP000946

PATIENT
  Age: 34 Year
  Sex: Male

DRUGS (5)
  1. CARBAMAZEPINE [Suspect]
     Indication: COMPLEX PARTIAL SEIZURES
     Dosage: 1600 MG; QD
  2. ACETAMINOPHEN [Suspect]
     Indication: BACK PAIN
     Dosage: 2500 MG; 2000 MG;QD
  3. CLOBAZAM [Concomitant]
  4. METHOCARBAMOL [Concomitant]
  5. MESALAZINE [Concomitant]

REACTIONS (8)
  - ABDOMINAL PAIN [None]
  - ACUTE HEPATIC FAILURE [None]
  - BALANCE DISORDER [None]
  - DIPLOPIA [None]
  - DRUG INTERACTION [None]
  - GAIT DISTURBANCE [None]
  - RENAL FAILURE ACUTE [None]
  - TUBULOINTERSTITIAL NEPHRITIS [None]
